FAERS Safety Report 10787814 (Version 1)
Quarter: 2015Q1

REPORT INFORMATION
  Report Type: Spontaneous
  Country: US (occurrence: US)
  Receive Date: 20150212
  Receipt Date: 20150212
  Transmission Date: 20150721
  Serious: No
  Sender: FDA-Public Use
  Company Number: US-009507513-1502USA004622

PATIENT
  Sex: Female
  Weight: 148.3 kg

DRUGS (1)
  1. IMPLANON [Suspect]
     Active Substance: ETONOGESTREL
     Indication: CONTRACEPTION
     Dosage: UNK
     Route: 059
     Dates: start: 20111215

REACTIONS (4)
  - Weight increased [Unknown]
  - Obesity [Unknown]
  - Medical device complication [Unknown]
  - Incorrect drug administration duration [Unknown]
